FAERS Safety Report 6344231-2 (Version None)
Quarter: 2009Q3

REPORT INFORMATION
  Report Type: 
  Country: None (occurrence: None)
  Receive Date: 20090908
  Receipt Date: 20090825
  Transmission Date: 20100115
  Serious: Yes (Hospitalization)
  Sender: FDA-Public Use
  Company Number: IT-PFIZER INC-2009246321

PATIENT
  Age: 71 Year

DRUGS (1)
  1. FARMORUBICINA [Suspect]
     Indication: BLADDER CANCER
     Dosage: 80 MG, TOTAL
     Route: 043
     Dates: start: 20090723, end: 20090723

REACTIONS (5)
  - BRONCHOSPASM [None]
  - CHEST PAIN [None]
  - ELECTROCARDIOGRAM ST SEGMENT ELEVATION [None]
  - ERYTHEMA [None]
  - HYPOTENSION [None]
